FAERS Safety Report 10175450 (Version 1)
Quarter: 2014Q2

REPORT INFORMATION
  Report Type: Spontaneous
  Country: US (occurrence: US)
  Receive Date: 20140515
  Receipt Date: 20140515
  Transmission Date: 20141212
  Serious: No
  Sender: FDA-Public Use
  Company Number: US-009507513-1405USA006656

PATIENT
  Sex: 0

DRUGS (2)
  1. JANUVIA [Suspect]
     Indication: DIABETES MELLITUS
     Dosage: 50 MG, UNK
     Route: 048
     Dates: end: 201405
  2. JANUVIA [Suspect]
     Dosage: 100MG,QD
     Route: 048
     Dates: start: 201405, end: 201405

REACTIONS (3)
  - Drug ineffective [Unknown]
  - Nausea [Unknown]
  - Abdominal discomfort [Unknown]
